FAERS Safety Report 8208041-3 (Version None)
Quarter: 2012Q1

REPORT INFORMATION
  Report Type: 
  Country: None (occurrence: None)
  Receive Date: 20120314
  Receipt Date: 20120306
  Transmission Date: 20120608
  Serious: Yes (Death, Life-Threatening, Hospitalization, Other)
  Sender: FDA-Public Use
  Company Number: MX-SANOFI-AVENTIS-2012SA015397

PATIENT
  Age: 69 Year
  Sex: Male

DRUGS (2)
  1. ANTIHYPERTENSIVES [Concomitant]
     Dates: end: 20111215
  2. LANTUS [Suspect]
     Indication: TYPE 2 DIABETES MELLITUS
     Route: 058
     Dates: start: 20080101, end: 20111215

REACTIONS (4)
  - HYPOGLYCAEMIA [None]
  - CONVULSION [None]
  - GENERALISED OEDEMA [None]
  - RENAL FAILURE CHRONIC [None]
